FAERS Safety Report 8267172-2 (Version None)
Quarter: 2012Q2

REPORT INFORMATION
  Report Type: 
  Country: None (occurrence: None)
  Receive Date: 20120409
  Receipt Date: 20120327
  Transmission Date: 20120825
  Serious: Yes (Life-Threatening, Hospitalization, Other)
  Sender: FDA-Public Use
  Company Number: DE-JNJFOC-20111208799

PATIENT
  Age: 41 Year
  Sex: Male
  Weight: 65 kg

DRUGS (3)
  1. REMICADE [Suspect]
     Indication: COLITIS ULCERATIVE
     Route: 042
     Dates: start: 20110718
  2. REMICADE [Suspect]
     Route: 042
     Dates: start: 20110815
  3. REMICADE [Suspect]
     Route: 042
     Dates: start: 20110628

REACTIONS (10)
  - RECTAL CANCER METASTATIC [None]
  - COLITIS ULCERATIVE [None]
  - ILEUS [None]
  - HYPOAESTHESIA ORAL [None]
  - INFECTED DERMAL CYST [None]
  - PANCYTOPENIA [None]
  - SEPSIS [None]
  - PSOAS ABSCESS [None]
  - PLEURAL EFFUSION [None]
  - PAIN IN JAW [None]
